FAERS Safety Report 9304541 (Version 1)
Quarter: 2013Q2

REPORT INFORMATION
  Report Type: Spontaneous
  Country: AU (occurrence: AU)
  Receive Date: 20130523
  Receipt Date: 20130523
  Transmission Date: 20140414
  Serious: Yes (Life-Threatening)
  Sender: FDA-Public Use
  Company Number: AU-AMGEN-AUSSP2013035990

PATIENT
  Age: 53 Year
  Sex: Female

DRUGS (5)
  1. PEGFILGRASTIM [Suspect]
     Indication: PRODUCT USED FOR UNKNOWN INDICATION
     Dosage: 6 MG, FORTNIGHTLY
     Route: 058
     Dates: start: 20120929, end: 20121228
  2. BLEOMYCIN SULPHATE [Suspect]
     Dosage: 15000 IU, FORTNIGHTLY
     Route: 040
     Dates: start: 20120913, end: 20121227
  3. DACARBAZINE [Suspect]
     Dosage: 700 MG, FORTNIGHTLY
     Route: 042
     Dates: start: 20120913, end: 20121227
  4. DOXORUBICIN HYDROCHLORIDE [Suspect]
     Dosage: 45 MG, FORTNIGHTLY
     Route: 040
     Dates: start: 20120913, end: 20121227
  5. VINBLASTINE SULPHATE [Suspect]
     Dosage: 10 MG, FORTNIGHTLY
     Route: 040
     Dates: start: 20120913, end: 20121227

REACTIONS (1)
  - Pulmonary fibrosis [Not Recovered/Not Resolved]
